FAERS Safety Report 6794642-6 (Version None)
Quarter: 2010Q2

REPORT INFORMATION
  Report Type: 
  Country: None (occurrence: None)
  Receive Date: 20100625
  Receipt Date: 20100614
  Transmission Date: 20101027
  Serious: Yes (Death, Hospitalization)
  Sender: FDA-Public Use
  Company Number: US-JNJFOC-20040502574

PATIENT
  Age: 68 Year
  Sex: Female

DRUGS (5)
  1. REMICADE [Suspect]
     Indication: CROHN'S DISEASE
     Route: 042
  2. FOSAMAX [Concomitant]
  3. CLARITIN [Concomitant]
  4. PROTONIX [Concomitant]
  5. PREDNISONE [Concomitant]

REACTIONS (1)
  - PNEUMONIA LEGIONELLA [None]
